FAERS Safety Report 6841373-X (Version None)
Quarter: 2010Q3

REPORT INFORMATION
  Report Type: 
  Country: None (occurrence: None)
  Receive Date: 20100714
  Receipt Date: 20070705
  Transmission Date: 20110219
  Serious: No
  Sender: FDA-Public Use
  Company Number: US-PFIZER INC-2007055096

PATIENT
  Sex: Female
  Weight: 72.6 kg

DRUGS (7)
  1. CHANTIX [Suspect]
     Indication: SMOKING CESSATION THERAPY
     Dates: start: 20070623
  2. MULTI-VITAMINS [Concomitant]
  3. LISINOPRIL [Concomitant]
     Indication: HYPERTENSION
  4. HYDROCHLOROTHIAZIDE [Concomitant]
     Indication: HYPERTENSION
  5. VITAMIN B-12 [Concomitant]
  6. ADVIL LIQUI-GELS [Concomitant]
  7. ALEVE (CAPLET) [Concomitant]

REACTIONS (2)
  - NAUSEA [None]
  - POLLAKIURIA [None]
